FAERS Safety Report 9481251 (Version 1)
Quarter: 2013Q3

REPORT INFORMATION
  Report Type: Spontaneous
  Country: DE (occurrence: DE)
  Receive Date: 20130828
  Receipt Date: 20130828
  Transmission Date: 20140515
  Serious: Yes (Hospitalization)
  Sender: FDA-Public Use
  Company Number: DE-009507513-1308DEU011111

PATIENT
  Age: 84 Year
  Sex: Female
  Weight: 52 kg

DRUGS (5)
  1. MIRTAZAPINE [Suspect]
     Indication: ANXIETY
     Dosage: UNK
     Route: 048
     Dates: end: 20130621
  2. ZOPICLONE [Concomitant]
     Indication: ANXIETY
     Route: 048
  3. AMLODIPINE [Concomitant]
     Dosage: 5 MG, UNK
     Route: 048
  4. BELOC ZOK MITE [Concomitant]
     Route: 048
  5. DIOVAN [Concomitant]
     Dosage: 160 MG EVERY DAY
     Route: 048

REACTIONS (1)
  - Inappropriate antidiuretic hormone secretion [Unknown]
